FAERS Safety Report 4278477-4 (Version None)
Quarter: 2004Q1

REPORT INFORMATION
  Report Type: 
  Country: None (occurrence: None)
  Receive Date: 20040123
  Receipt Date: 20031030
  Transmission Date: 20041129
  Serious: Yes (Other)
  Sender: FDA-Public Use
  Company Number: WAES 0310USA03302

PATIENT
  Age: 15 Year
  Sex: Female

DRUGS (4)
  1. MINOCYCLINE HCL [Concomitant]
     Indication: ACNE
  2. VIOXX [Suspect]
     Indication: POST PROCEDURAL PAIN
     Route: 048
  3. VIOXX [Suspect]
     Route: 048
     Dates: start: 20031001, end: 20031026
  4. VIOXX [Suspect]
     Route: 048
     Dates: start: 20031001, end: 20031026

REACTIONS (5)
  - GASTROINTESTINAL DISORDER [None]
  - PRESCRIBED OVERDOSE [None]
  - PRURITUS [None]
  - RASH ERYTHEMATOUS [None]
  - URTICARIA PAPULAR [None]
